FAERS Safety Report 22601722 (Version 1)
Quarter: 2023Q2

REPORT INFORMATION
  Report Type: Report from Study
  Country: US (occurrence: None)
  Receive Date: 20230614
  Receipt Date: 20230614
  Transmission Date: 20230722
  Serious: Yes (Hospitalization)
  Sender: FDA-Public Use
  Company Number: 2023A133139

PATIENT
  Age: 61 Year
  Sex: Male
  Weight: 73.9 kg

DRUGS (27)
  1. CALQUENCE [Suspect]
     Active Substance: ACALABRUTINIB
     Indication: B-cell lymphoma
     Route: 048
     Dates: start: 20230323
  2. ACYCLOVIR [Concomitant]
     Active Substance: ACYCLOVIR
  3. ASPIRIN [Concomitant]
     Active Substance: ASPIRIN
  4. ATIVAN [Concomitant]
     Active Substance: LORAZEPAM
  5. CALCIUM\VITAMIN D [Concomitant]
     Active Substance: CALCIUM\VITAMIN D
  6. CLOPIDOGREL [Concomitant]
     Active Substance: CLOPIDOGREL BISULFATE
  7. COREG [Concomitant]
     Active Substance: CARVEDILOL
  8. CRESTOR [Concomitant]
     Active Substance: ROSUVASTATIN CALCIUM
  9. DOCUSATE [Concomitant]
     Active Substance: DOCUSATE
  10. FUROSEMIDE [Concomitant]
     Active Substance: FUROSEMIDE
  11. HYDRALAZINE [Concomitant]
     Active Substance: HYDRALAZINE HYDROCHLORIDE
  12. LEXAPRO [Concomitant]
     Active Substance: ESCITALOPRAM OXALATE
  13. LYRICA [Concomitant]
     Active Substance: PREGABALIN
  14. VITAMINS [Concomitant]
     Active Substance: VITAMINS
  15. NAMENDA [Concomitant]
     Active Substance: MEMANTINE HYDROCHLORIDE
  16. NITROSTAT [Concomitant]
     Active Substance: NITROGLYCERIN
  17. NORCO [Concomitant]
     Active Substance: ACETAMINOPHEN\HYDROCODONE BITARTRATE
  18. POTASSIUM [Concomitant]
     Active Substance: POTASSIUM
  19. PREDNISONE [Concomitant]
     Active Substance: PREDNISONE
  20. SEVELAMER [Concomitant]
     Active Substance: SEVELAMER
  21. STEGLATRO [Concomitant]
     Active Substance: ERTUGLIFLOZIN PIDOLATE
  22. TUMS [Concomitant]
     Active Substance: CALCIUM CARBONATE
  23. VITAMIN B CVOMPLEX [Concomitant]
  24. VITAMIN D3 [Concomitant]
     Active Substance: CHOLECALCIFEROL
  25. ZESTRIL [Concomitant]
     Active Substance: LISINOPRIL
  26. ZETIA [Concomitant]
     Active Substance: EZETIMIBE
  27. ZOVIRAX [Concomitant]
     Active Substance: ACYCLOVIR

REACTIONS (2)
  - Dehydration [Unknown]
  - Full blood count abnormal [Unknown]

NARRATIVE: CASE EVENT DATE: 20230420
